FAERS Safety Report 14019788 (Version 2)
Quarter: 2023Q4

REPORT INFORMATION
  Report Type: Report from Study
  Country: DE (occurrence: DE)
  Receive Date: 20170928
  Receipt Date: 20231018
  Transmission Date: 20240110
  Serious: Yes (Other)
  Sender: FDA-Public Use
  Company Number: DE-JNJFOC-20170924743

PATIENT
  Age: 4 Decade
  Sex: Female

DRUGS (7)
  1. SIMPONI [Suspect]
     Active Substance: GOLIMUMAB
     Indication: Rheumatoid arthritis
     Route: 058
     Dates: start: 201307, end: 201601
  2. ENBREL [Concomitant]
     Active Substance: ETANERCEPT
     Route: 065
     Dates: start: 201603
  3. ORENCIA [Concomitant]
     Active Substance: ABATACEPT
  4. CIMZIA [Concomitant]
     Active Substance: CERTOLIZUMAB PEGOL
  5. XELJANZ [Concomitant]
     Active Substance: TOFACITINIB CITRATE
  6. HYRIMOZ [Concomitant]
     Active Substance: ADALIMUMAB-ADAZ
  7. RINVOQ [Concomitant]
     Active Substance: UPADACITINIB

REACTIONS (2)
  - Basal cell carcinoma [Recovered/Resolved]
  - Fibrocystic breast disease [Not Recovered/Not Resolved]

NARRATIVE: CASE EVENT DATE: 20161018
